FAERS Safety Report 4939151-1 (Version None)
Quarter: 2006Q1

REPORT INFORMATION
  Report Type: 
  Country: None (occurrence: None)
  Receive Date: 20060306
  Receipt Date: 20060220
  Transmission Date: 20060701
  Serious: Yes (Hospitalization)
  Sender: FDA-Public Use
  Company Number: B0412759A

PATIENT
  Age: 61 Year
  Sex: Male

DRUGS (4)
  1. AVANDIA [Suspect]
     Indication: DIABETES MELLITUS
     Dosage: UNKNOWN
     Route: 065
  2. INSULIN [Concomitant]
  3. VALSARTAN [Concomitant]
  4. ASPIRIN [Concomitant]

REACTIONS (2)
  - CORONARY ARTERY DISEASE [None]
  - PLEURAL EFFUSION [None]
